FAERS Safety Report 4724223-7 (Version None)
Quarter: 2005Q3

REPORT INFORMATION
  Report Type: 
  Country: None (occurrence: None)
  Receive Date: 20050726
  Receipt Date: 20050713
  Transmission Date: 20060218
  Serious: Yes (Other)
  Sender: FDA-Public Use
  Company Number: PHRM2005FR02113

PATIENT
  Sex: Female

DRUGS (4)
  1. SANDOSTATIN [Suspect]
  2. TIENAM [Concomitant]
  3. TRIFLUCAN [Concomitant]
     Route: 065
  4. AZANTAC [Concomitant]
     Route: 065

REACTIONS (2)
  - ACCIDENTAL OVERDOSE [None]
  - PANCYTOPENIA [None]
